FAERS Safety Report 18496386 (Version 1)
Quarter: 2020Q4

REPORT INFORMATION
  Report Type: Spontaneous
  Country: FR (occurrence: FR)
  Receive Date: 20201112
  Receipt Date: 20201112
  Transmission Date: 20210114
  Serious: Yes (Other)
  Sender: FDA-Public Use
  Company Number: FR-PFIZER INC-2020441108

PATIENT
  Age: 64 Year
  Sex: Male
  Weight: 67 kg

DRUGS (2)
  1. CORDARONE [Suspect]
     Active Substance: AMIODARONE HYDROCHLORIDE
     Dosage: 200 MG, 1X/DAY
     Route: 048
  2. LINEZOLID. [Suspect]
     Active Substance: LINEZOLID
     Indication: OSTEITIS
     Dosage: 1200 MG, 1X/DAY
     Route: 048
     Dates: start: 20170425, end: 20180430

REACTIONS (4)
  - Axonal neuropathy [Recovering/Resolving]
  - Off label use [Unknown]
  - Product use in unapproved indication [Unknown]
  - Polyneuropathy [Recovering/Resolving]

NARRATIVE: CASE EVENT DATE: 20170425
